FAERS Safety Report 6983798-8 (Version None)
Quarter: 2010Q3

REPORT INFORMATION
  Report Type: 
  Country: None (occurrence: None)
  Receive Date: 20100914
  Receipt Date: 20090202
  Transmission Date: 20110219
  Serious: No
  Sender: FDA-Public Use
  Company Number: US-WYE-H07529809

PATIENT
  Age: 70 Year
  Sex: Female
  Weight: 65.83 kg

DRUGS (2)
  1. ADVIL LIQUI-GELS [Suspect]
     Indication: INSOMNIA
     Dosage: 1 CAPSULE EVERY 1 PRN
     Route: 048
     Dates: start: 20081201, end: 20081201
  2. BENADRYL [Suspect]
     Dosage: UNKNOWN
     Route: 048

REACTIONS (2)
  - DRUG INEFFECTIVE [None]
  - PSYCHOMOTOR HYPERACTIVITY [None]
